FAERS Safety Report 8007288-9 (Version None)
Quarter: 2011Q4

REPORT INFORMATION
  Report Type: 
  Country: None (occurrence: None)
  Receive Date: 20111227
  Receipt Date: 20111221
  Transmission Date: 20120403
  Serious: Yes (Hospitalization, Other)
  Sender: FDA-Public Use
  Company Number: US-PFIZER INC-2011310880

PATIENT
  Sex: Female
  Weight: 65.76 kg

DRUGS (3)
  1. GEODON [Suspect]
     Dosage: UNK
     Dates: start: 20111212, end: 20111221
  2. DIVALPROEX SODIUM [Suspect]
     Indication: BIPOLAR DISORDER
     Dosage: 500 MG, 2X/DAY
     Route: 048
     Dates: start: 20111212, end: 20111221
  3. GEODON [Suspect]
     Indication: BIPOLAR DISORDER
     Dosage: UNK
     Dates: start: 20080101, end: 20100501

REACTIONS (4)
  - HYPERTENSION [None]
  - SUICIDE ATTEMPT [None]
  - WITHDRAWAL SYNDROME [None]
  - AGITATION [None]
